FAERS Safety Report 7870703-5 (Version None)
Quarter: 2011Q4

REPORT INFORMATION
  Report Type: 
  Country: None (occurrence: None)
  Receive Date: 20111029
  Receipt Date: 20110221
  Transmission Date: 20120403
  Serious: No
  Sender: FDA-Public Use
  Company Number: US-AMGEN-USASP2011010010

PATIENT
  Sex: Female

DRUGS (4)
  1. PLAQUENIL [Concomitant]
  2. PREDNISONE [Concomitant]
  3. BENADRYL [Concomitant]
  4. ENBREL [Suspect]
     Indication: RHEUMATOID ARTHRITIS
     Dosage: 50 MG, QWK
     Dates: start: 20110101

REACTIONS (2)
  - INJECTION SITE REACTION [None]
  - INJECTION SITE ERYTHEMA [None]
